FAERS Safety Report 6842657-1 (Version None)
Quarter: 2010Q3

REPORT INFORMATION
  Report Type: 
  Country: None (occurrence: None)
  Receive Date: 20100714
  Receipt Date: 20070802
  Transmission Date: 20110219
  Serious: No
  Sender: FDA-Public Use
  Company Number: US-PFIZER INC-2007065846

PATIENT
  Sex: Female
  Weight: 77.6 kg

DRUGS (10)
  1. CHANTIX [Suspect]
     Indication: SMOKING CESSATION THERAPY
     Dates: start: 20070701
  2. KLONOPIN [Suspect]
     Indication: ANXIETY
  3. KLONOPIN [Suspect]
     Indication: EMOTIONAL DISORDER
  4. PAROXETINE [Concomitant]
     Indication: DEPRESSION
  5. OXYGEN [Concomitant]
     Indication: CHRONIC OBSTRUCTIVE PULMONARY DISEASE
  6. COMBIVENT [Concomitant]
  7. ALBUTEROL [Concomitant]
  8. FLOVENT [Concomitant]
  9. MONTELUKAST SODIUM [Concomitant]
  10. PERCOCET [Concomitant]
     Indication: BACK PAIN

REACTIONS (4)
  - ANXIETY [None]
  - ASTHENIA [None]
  - DECREASED APPETITE [None]
  - EATING DISORDER [None]
